FAERS Safety Report 10616048 (Version 1)
Quarter: 2014Q4

REPORT INFORMATION
  Report Type: Spontaneous
  Country: DE (occurrence: DE)
  Receive Date: 20141201
  Receipt Date: 20141201
  Transmission Date: 20150529
  Serious: Yes (Hospitalization)
  Sender: FDA-Public Use
  Company Number: DE-SA-2014SA164044

PATIENT
  Sex: Female

DRUGS (1)
  1. FERRLECIT [Suspect]
     Active Substance: SODIUM FERRIC GLUCONATE COMPLEX
     Route: 065
     Dates: start: 201411

REACTIONS (3)
  - Cardiac discomfort [Unknown]
  - Tachycardia [Unknown]
  - Chest pain [Unknown]

NARRATIVE: CASE EVENT DATE: 201411
